FAERS Safety Report 24311650 (Version 1)
Quarter: 2024Q3

REPORT INFORMATION
  Report Type: Report from Study
  Country: US (occurrence: US)
  Receive Date: 20240912
  Receipt Date: 20240912
  Transmission Date: 20241016
  Serious: No
  Sender: LFB GROUP
  Company Number: US-LFBP-2024000153

PATIENT
  Age: 28 Year
  Sex: Male
  Weight: 69.1 kg

DRUGS (1)
  1. SEVENFACT [Suspect]
     Active Substance: COAGULATION FACTOR VIIA RECOMBINANT HUMAN-JNCW
     Indication: Haemorrhage
     Dosage: 225 MCG/KG INITIAL, 75 MCG/KG SUBSEQUENT
     Route: 042
     Dates: start: 20211015, end: 20211018

REACTIONS (2)
  - Drug ineffective [Not Recovered/Not Resolved]
  - No adverse event [Unknown]

NARRATIVE: CASE EVENT DATE: 20211015
